FAERS Safety Report 9321462 (Version 2)
Quarter: 2013Q2

REPORT INFORMATION
  Report Type: Report from Study
  Country: CA (occurrence: CA)
  Receive Date: 20130531
  Receipt Date: 20130618
  Transmission Date: 20140414
  Serious: Yes (Death, Hospitalization, Other)
  Sender: FDA-Public Use
  Company Number: CA-BRISTOL-MYERS SQUIBB COMPANY-15530298

PATIENT
  Age: 53 Year
  Sex: Male
  Weight: 76 kg

DRUGS (11)
  1. ORENCIA [Suspect]
     Indication: RHEUMATOID ARTHRITIS
     Dosage: LT DOSE:20JA11,25NV10,8DC,22D10,20J11,5:24FB11,29JN,19DC11;LT:1G64569;MAR14,INF:22?2J72521,J15:EXDT
     Route: 042
     Dates: start: 20101125, end: 2013
  2. SPIRIVA [Concomitant]
  3. VENTOLIN [Concomitant]
  4. SULFASALAZINE [Concomitant]
  5. PLAQUENIL [Concomitant]
  6. METHOTREXATE SODIUM INJ [Concomitant]
     Dosage: FORMULATION:INJECTION
  7. FOLIC ACID [Concomitant]
     Dosage: EURO FOLIC
  8. VITAMIN D [Concomitant]
  9. CALCIUM [Concomitant]
  10. ENBREL [Concomitant]
  11. ADVAIR [Concomitant]

REACTIONS (15)
  - Respiratory failure [Fatal]
  - Bronchitis [Recovered/Resolved]
  - Sinusitis [Not Recovered/Not Resolved]
  - Influenza [Recovered/Resolved]
  - Pneumonia [Recovered/Resolved]
  - Suicidal ideation [Unknown]
  - Fluid retention [Unknown]
  - Pleural infection [Recovering/Resolving]
  - Lung infection [Not Recovered/Not Resolved]
  - Dizziness [Not Recovered/Not Resolved]
  - Dyspnoea [Not Recovered/Not Resolved]
  - Epistaxis [Unknown]
  - Varicose ulceration [Not Recovered/Not Resolved]
  - Wound infection [Recovering/Resolving]
  - Chronic obstructive pulmonary disease [Unknown]
